FAERS Safety Report 5681115-7 (Version None)
Quarter: 2008Q1

REPORT INFORMATION
  Report Type: 
  Country: None (occurrence: None)
  Receive Date: 20080325
  Receipt Date: 20080311
  Transmission Date: 20080703
  Serious: Yes (Hospitalization)
  Sender: FDA-Public Use
  Company Number: 2007002546

PATIENT
  Age: 50 Year
  Sex: Male

DRUGS (3)
  1. ERLOTINIB (ERLOTINIB HC1) (TABLET) (ERLOTINIB HC1) [Suspect]
     Indication: PANCREATIC CARCINOMA METASTATIC
     Dosage: 100 MG, QD, ORAL
     Route: 048
     Dates: start: 20071206
  2. BEVACIZUMAB (INJECTION FOR INFUSION) [Suspect]
     Indication: PANCREATIC CARCINOMA METASTATIC
     Dosage: Q2W, INTRAVENOUS
     Route: 042
     Dates: start: 20051206, end: 20070821
  3. GEMCITABINE (GEMCITABINE) (INJECTION OF INFUSION) [Suspect]
     Indication: PANCREATIC CARCINOMA METASTATIC
     Dosage: 750 MG, QW, INTRAVENOUS
     Route: 042
     Dates: start: 20051206, end: 20070925

REACTIONS (2)
  - CHOLANGITIS [None]
  - HEPATIC HAEMATOMA [None]
